FAERS Safety Report 20030670 (Version 1)
Quarter: 2021Q4

REPORT INFORMATION
  Report Type: Spontaneous
  Country: CA (occurrence: CA)
  Receive Date: 20211103
  Receipt Date: 20211103
  Transmission Date: 20220303
  Serious: Yes (Other)
  Sender: FDA-Public Use
  Company Number: CA-TEVA-2021-CA-1972073

PATIENT
  Sex: Female

DRUGS (11)
  1. ACETAMINOPHEN [Suspect]
     Active Substance: ACETAMINOPHEN
     Indication: Product used for unknown indication
     Route: 065
  2. ACETAMINOPHEN\CODEINE PHOSPHATE [Suspect]
     Active Substance: ACETAMINOPHEN\CODEINE PHOSPHATE
     Indication: Product used for unknown indication
     Route: 065
  3. ACETAMINOPHEN\OXYCODONE HYDROCHLORIDE [Suspect]
     Active Substance: ACETAMINOPHEN\OXYCODONE HYDROCHLORIDE
     Indication: Product used for unknown indication
     Route: 065
  4. FENTANYL [Suspect]
     Active Substance: FENTANYL
     Indication: Product used for unknown indication
     Route: 065
  5. MORPHINE [Suspect]
     Active Substance: MORPHINE
     Indication: Product used for unknown indication
     Route: 065
  6. ACETAMINOPHEN\CAFFEINE\CODEINE [Suspect]
     Active Substance: ACETAMINOPHEN\CAFFEINE\CODEINE
     Indication: Product used for unknown indication
     Route: 065
  7. CHLOROQUINE DIPHOSPHATE [Suspect]
     Active Substance: CHLOROQUINE PHOSPHATE
     Indication: Product used for unknown indication
     Route: 065
  8. OXYCODONE HYDROCHLORIDE [Suspect]
     Active Substance: OXYCODONE HYDROCHLORIDE
     Indication: Product used for unknown indication
     Route: 065
  9. OXYCONTIN [Suspect]
     Active Substance: OXYCODONE HYDROCHLORIDE
     Indication: Product used for unknown indication
     Route: 065
  10. TRAMADOL HYDROCHLORIDE [Suspect]
     Active Substance: TRAMADOL HYDROCHLORIDE
     Indication: Product used for unknown indication
     Route: 065
  11. ULTRAM [Suspect]
     Active Substance: TRAMADOL HYDROCHLORIDE
     Indication: Product used for unknown indication
     Route: 065

REACTIONS (10)
  - Amnesia [Not Recovered/Not Resolved]
  - Anxiety [Not Recovered/Not Resolved]
  - Arthralgia [Not Recovered/Not Resolved]
  - Dependence [Not Recovered/Not Resolved]
  - Depression [Not Recovered/Not Resolved]
  - Disturbance in attention [Not Recovered/Not Resolved]
  - Drug dependence [Not Recovered/Not Resolved]
  - Learning disability [Not Recovered/Not Resolved]
  - Somnolence [Not Recovered/Not Resolved]
  - Weight increased [Not Recovered/Not Resolved]
